FAERS Safety Report 8819279 (Version 1)
Quarter: 2012Q4

REPORT INFORMATION
  Report Type: Spontaneous
  Country: FR (occurrence: None)
  Receive Date: 20121003
  Receipt Date: 20121003
  Transmission Date: 20130627
  Serious: Yes (Life-Threatening)
  Sender: FDA-Public Use
  Company Number: DSA_59908_2012

PATIENT
  Age: 80 Year
  Sex: Female

DRUGS (4)
  1. FLAGYL [Suspect]
     Indication: EPIGASTRALGIA
     Route: 042
     Dates: start: 20120608, end: 20120609
  2. FLAGYL [Suspect]
     Indication: EPIGASTRALGIA
     Dates: start: 201205, end: 201205
  3. NOROXINE [Concomitant]
  4. CLAMOXYL [Concomitant]

REACTIONS (4)
  - Anaphylactic reaction [None]
  - Fall [None]
  - Urticaria [None]
  - Loss of consciousness [None]
